FAERS Safety Report 17648143 (Version 2)
Quarter: 2022Q1

REPORT INFORMATION
  Report Type: Spontaneous
  Country: FR (occurrence: FR)
  Receive Date: 20200409
  Receipt Date: 20220204
  Transmission Date: 20220424
  Serious: Yes (Other)
  Sender: FDA-Public Use
  Company Number: FR-CELLTRION INC.-2020FR021327

PATIENT

DRUGS (2)
  1. RITUXIMAB [Suspect]
     Active Substance: RITUXIMAB
     Indication: Small cell lung cancer
     Route: 065
  2. MYCOPHENOLATE MOFETIL [Suspect]
     Active Substance: MYCOPHENOLATE MOFETIL
     Indication: Small cell lung cancer
     Route: 065

REACTIONS (6)
  - Myasthenic syndrome [Unknown]
  - Limbic encephalitis [Unknown]
  - Epilepsy [Unknown]
  - Intracranial mass [Unknown]
  - Nervous system disorder [Unknown]
  - Off label use [Unknown]
